FAERS Safety Report 14742922 (Version 1)
Quarter: 2018Q2

REPORT INFORMATION
  Report Type: Report from Study
  Country: US (occurrence: US)
  Receive Date: 20180410
  Receipt Date: 20180410
  Transmission Date: 20180711
  Serious: Yes (Hospitalization)
  Sender: FDA-Public Use
  Company Number: US-ACTELION-A-US2018-169835

PATIENT
  Age: 74 Year
  Sex: Male

DRUGS (2)
  1. OPSUMIT [Suspect]
     Active Substance: MACITENTAN
     Indication: PRODUCT USED FOR UNKNOWN INDICATION
     Route: 048
  2. OXYGEN. [Concomitant]
     Active Substance: OXYGEN

REACTIONS (3)
  - Oxygen therapy [Not Recovered/Not Resolved]
  - Lung disorder [Not Recovered/Not Resolved]
  - Pulmonary arterial hypertension [Unknown]
